FAERS Safety Report 18978010 (Version 1)
Quarter: 2021Q1

REPORT INFORMATION
  Report Type: Spontaneous
  Country: US (occurrence: US)
  Receive Date: 20210307
  Receipt Date: 20210307
  Transmission Date: 20210420
  Serious: No
  Sender: FDA-Public Use
  Company Number: US-SUN PHARMACEUTICAL INDUSTRIES LTD-2020R1-274448

PATIENT
  Age: 8 Year

DRUGS (1)
  1. CEQUA [Suspect]
     Active Substance: CYCLOSPORINE
     Indication: ATOPIC KERATOCONJUNCTIVITIS
     Dosage: UNK
     Route: 047

REACTIONS (1)
  - Product use in unapproved indication [Unknown]
